FAERS Safety Report 25788386 (Version 4)
Quarter: 2025Q4

REPORT INFORMATION
  Report Type: Spontaneous
  Country: CA (occurrence: CA)
  Receive Date: 20250910
  Receipt Date: 20251204
  Transmission Date: 20260117
  Serious: Yes (Other)
  Sender: PFIZER
  Company Number: CA-PFIZER INC-202500161407

PATIENT
  Age: 62 Year
  Sex: Male
  Weight: 97 kg

DRUGS (10)
  1. IXIFI [Suspect]
     Active Substance: INFLIXIMAB-QBTX
     Indication: Crohn^s disease
     Dosage: AT WEEK 0,2 AND 6
     Route: 042
     Dates: start: 20250619
  2. IXIFI [Suspect]
     Active Substance: INFLIXIMAB-QBTX
     Dosage: AT WEEK 0,2 AND 6
     Route: 042
     Dates: start: 20250704
  3. IXIFI [Suspect]
     Active Substance: INFLIXIMAB-QBTX
     Dosage: AFTER 5 WEEKS AND 1 DAY
     Route: 042
     Dates: start: 20250809
  4. IXIFI [Suspect]
     Active Substance: INFLIXIMAB-QBTX
     Dosage: EVERY 4 WEEKS
     Route: 042
     Dates: start: 20250904
  5. IXIFI [Suspect]
     Active Substance: INFLIXIMAB-QBTX
     Dosage: EVERY 4 WEEKS
     Route: 042
     Dates: start: 20251002
  6. IXIFI [Suspect]
     Active Substance: INFLIXIMAB-QBTX
     Dosage: EVERY 4 WEEKS
     Route: 042
     Dates: start: 20251002
  7. IXIFI [Suspect]
     Active Substance: INFLIXIMAB-QBTX
     Dosage: EVERY 4 WEEKS
     Route: 042
     Dates: start: 20251030
  8. IXIFI [Suspect]
     Active Substance: INFLIXIMAB-QBTX
     Dosage: EVERY 4 WEEKS
     Route: 042
     Dates: start: 20251127
  9. IMURAN [Concomitant]
     Active Substance: AZATHIOPRINE
     Dosage: UNK
  10. PENTASA [Concomitant]
     Active Substance: MESALAMINE
     Dosage: UNK

REACTIONS (5)
  - Rotator cuff repair [Unknown]
  - Arthralgia [Recovered/Resolved]
  - Condition aggravated [Recovering/Resolving]
  - Infusion site extravasation [Recovered/Resolved]
  - Inappropriate schedule of product administration [Unknown]

NARRATIVE: CASE EVENT DATE: 20250801
